FAERS Safety Report 13312452 (Version 1)
Quarter: 2017Q1

REPORT INFORMATION
  Report Type: Spontaneous
  Country: US (occurrence: US)
  Receive Date: 20170309
  Receipt Date: 20170309
  Transmission Date: 20170428
  Serious: Yes (Hospitalization)
  Sender: FDA-Public Use
  Company Number: None

PATIENT
  Age: 69 Year
  Sex: Female

DRUGS (16)
  1. LUTEIN [Concomitant]
     Active Substance: LUTEIN
  2. VITAMIN B COMPLEX [Concomitant]
     Active Substance: CYANOCOBALAMIN\DEXPANTHENOL\NIACINAMIDE\PYRIDOXINE HYDROCHLORIDE\RIBOFLAVIN 5^-PHOSPHATE SODIUM\THIAMINE HYDROCHLORIDE\VITAMIN B COMPLEX
  3. HYDROCO [Concomitant]
  4. CALCIUM [Concomitant]
     Active Substance: CALCIUM
  5. VITAMIN E [Concomitant]
     Active Substance: .ALPHA.-TOCOPHEROL
  6. METHYLPRED [Concomitant]
     Active Substance: METHYLPREDNISOLONE
  7. METHOTREXATE. [Suspect]
     Active Substance: METHOTREXATE
     Indication: PSORIASIS
     Route: 058
     Dates: start: 20161130
  8. VITAMIN D [Concomitant]
     Active Substance: CHOLECALCIFEROL
  9. CITRACAL [Concomitant]
     Active Substance: CALCIUM CITRATE
  10. FOSAMAX [Concomitant]
     Active Substance: ALENDRONATE SODIUM
  11. TRAZODONE [Concomitant]
     Active Substance: TRAZODONE HYDROCHLORIDE
  12. MORPHINE [Concomitant]
     Active Substance: MORPHINE
  13. ZINC. [Concomitant]
     Active Substance: ZINC
  14. PRENATAL [Concomitant]
     Active Substance: VITAMINS
  15. MEDROL [Concomitant]
     Active Substance: METHYLPREDNISOLONE
  16. IBUPROFEN. [Concomitant]
     Active Substance: IBUPROFEN

REACTIONS (1)
  - Pneumonia [None]

NARRATIVE: CASE EVENT DATE: 20170121
